FAERS Safety Report 6995872-0 (Version None)
Quarter: 2010Q3

REPORT INFORMATION
  Report Type: 
  Country: None (occurrence: None)
  Receive Date: 20100918
  Receipt Date: 20090106
  Transmission Date: 20110219
  Serious: No
  Sender: FDA-Public Use
  Company Number: US-WYE-H06904808

PATIENT
  Sex: Female

DRUGS (6)
  1. EFFEXOR XR [Suspect]
     Indication: DEPRESSION
     Route: 048
     Dates: start: 20070501
  2. ALPRAZOLAM [Concomitant]
  3. LAMOTRIGINE [Concomitant]
  4. OXYCODONE HCL [Concomitant]
  5. LYRICA [Concomitant]
  6. AMFETAMINE ASPARTATE/AMFETAMINE SULFATE/DEXAMFETAMINE SACCHARATE/DEXAM [Concomitant]

REACTIONS (1)
  - DRUG SCREEN POSITIVE [None]
